FAERS Safety Report 5360179-4 (Version None)
Quarter: 2007Q2

REPORT INFORMATION
  Report Type: 
  Country: None (occurrence: None)
  Receive Date: 20070618
  Receipt Date: 20070607
  Transmission Date: 20071010
  Serious: No
  Sender: FDA-Public Use
  Company Number: PHEH2007US08514

PATIENT
  Sex: Male

DRUGS (2)
  1. ZOMETA [Suspect]
  2. RAD001 VS PLACEBO [Suspect]
     Indication: RENAL CANCER METASTATIC
     Dosage: CODE NOT BROKEN
     Route: 048

REACTIONS (2)
  - FATIGUE [None]
  - PYREXIA [None]
